FAERS Safety Report 8617656-X (Version None)
Quarter: 2012Q3

REPORT INFORMATION
  Report Type: 
  Country: None (occurrence: None)
  Receive Date: 20120824
  Receipt Date: 20120112
  Transmission Date: 20120928
  Serious: No
  Sender: FDA-Public Use
  Company Number: US-ASTRAZENECA-2012SE02680

PATIENT
  Age: 58 Year
  Sex: Male

DRUGS (5)
  1. SYMBICORT [Suspect]
     Dosage: TOTAL DAILY DOSE 160/4.5MCG DAILY
     Route: 055
  2. NEXIUM [Suspect]
     Route: 048
  3. TOPROL-XL [Suspect]
     Route: 048
  4. ATACAND [Suspect]
     Route: 048
  5. CRESTOR [Suspect]
     Route: 048

REACTIONS (2)
  - ADVERSE EVENT [None]
  - FURUNCLE [None]
